FAERS Safety Report 18000266 (Version 2)
Quarter: 2021Q2

REPORT INFORMATION
  Report Type: Spontaneous
  Country: DE (occurrence: DE)
  Receive Date: 20200709
  Receipt Date: 20210610
  Transmission Date: 20210717
  Serious: Yes (Other)
  Sender: FDA-Public Use
  Company Number: DE-TEVA-2019-DE-1070610

PATIENT
  Sex: Female

DRUGS (1)
  1. QUETIAPIN?RATIOPHARM 50 MG RETARDTABLETTEN [Suspect]
     Active Substance: QUETIAPINE FUMARATE
     Dosage: 50 MILLIGRAM DAILY;
     Route: 048

REACTIONS (8)
  - Heart sounds abnormal [Unknown]
  - Product storage error [Unknown]
  - Liver function test increased [Unknown]
  - Amniotic fluid volume increased [Unknown]
  - Premature labour [Unknown]
  - Live birth [Unknown]
  - Foetal non-stress test abnormal [Unknown]
  - Maternal exposure during pregnancy [Unknown]

NARRATIVE: CASE EVENT DATE: 20191115
